FAERS Safety Report 18506921 (Version 2)
Quarter: 2021Q1

REPORT INFORMATION
  Report Type: Spontaneous
  Country: US (occurrence: US)
  Receive Date: 20201116
  Receipt Date: 20210204
  Transmission Date: 20210419
  Serious: No
  Sender: FDA-Public Use
  Company Number: US-PFIZER INC-2020445364

PATIENT
  Age: 19 Year
  Sex: Female

DRUGS (1)
  1. NALBUPHINE HYDROCHLORIDE. [Suspect]
     Active Substance: NALBUPHINE HYDROCHLORIDE
     Indication: MIGRAINE
     Dosage: UNK
     Dates: start: 1995

REACTIONS (3)
  - Product use in unapproved indication [Unknown]
  - Malaise [Unknown]
  - Off label use [Unknown]

NARRATIVE: CASE EVENT DATE: 1995
